FAERS Safety Report 9778551 (Version 1)
Quarter: 2013Q4

REPORT INFORMATION
  Report Type: Spontaneous
  Country: US (occurrence: US)
  Receive Date: 20131223
  Receipt Date: 20131223
  Transmission Date: 20140711
  Serious: Yes (Hospitalization)
  Sender: FDA-Public Use
  Company Number: US-SA-2013SA132661

PATIENT
  Age: 42 Year
  Sex: Female
  Weight: 79.37 kg

DRUGS (11)
  1. PLAVIX [Suspect]
     Indication: CORONARY ARTERY BYPASS
     Route: 048
     Dates: start: 201101
  2. FLEXERIL [Concomitant]
     Indication: RESTLESS LEGS SYNDROME
     Route: 065
  3. AMBIEN [Concomitant]
     Indication: SLEEP DISORDER
  4. SUMATRIPTAN [Concomitant]
     Indication: MIGRAINE
     Dosage: 100MG ONE AS NEEDED FOR MIGRAINES AND REPEAT AFTER ONE HOUR IF NEEDED
     Route: 065
  5. RANEXA [Concomitant]
     Route: 065
  6. PRAVASTATIN [Concomitant]
     Route: 065
  7. RANITIDINE [Concomitant]
     Route: 065
  8. ASPIRIN [Concomitant]
     Route: 065
  9. ZOLOFT [Concomitant]
     Dosage: 100MG (1.5 PILLS/DAY);
     Route: 065
  10. ZYRTEC [Concomitant]
  11. OMEPRAZOLE [Concomitant]

REACTIONS (6)
  - Cardiac disorder [Unknown]
  - Migraine [Unknown]
  - Photopsia [Unknown]
  - Nausea [Unknown]
  - Restless legs syndrome [Not Recovered/Not Resolved]
  - Insomnia [Unknown]
